FAERS Safety Report 7360374-9 (Version None)
Quarter: 2011Q1

REPORT INFORMATION
  Report Type: 
  Country: None (occurrence: None)
  Receive Date: 20110318
  Receipt Date: 20110309
  Transmission Date: 20110831
  Serious: Yes (Other)
  Sender: FDA-Public Use
  Company Number: US-BAYER-201037795NA

PATIENT
  Sex: Female
  Weight: 49.887 kg

DRUGS (1)
  1. MIRENA [Suspect]
     Indication: CONTRACEPTION
     Dosage: UNK
     Dates: start: 20090330, end: 20090701

REACTIONS (2)
  - DEVICE EXPULSION [None]
  - INFERTILITY FEMALE [None]
